FAERS Safety Report 23688329 (Version 1)
Quarter: 2024Q1

REPORT INFORMATION
  Report Type: Spontaneous
  Country: US (occurrence: US)
  Receive Date: 20240329
  Receipt Date: 20240329
  Transmission Date: 20240410
  Serious: No
  Sender: FDA-Public Use
  Company Number: US-LUPIN PHARMACEUTICALS INC.-2024-02549

PATIENT

DRUGS (1)
  1. GAVILYTE G [Suspect]
     Active Substance: POLYETHYLENE GLYCOL 3350\POTASSIUM CHLORIDE\SODIUM BICARBONATE\SODIUM CHLORIDE\SODIUM SULFATE
     Indication: Bowel preparation
     Dosage: UNK (8-OUNCE (240 ML) CUP OF THE SOLUTION RAPIDLY EVERY 10 MINUTES)
     Route: 048

REACTIONS (2)
  - Circumstance or information capable of leading to device use error [Unknown]
  - No adverse event [Unknown]
